FAERS Safety Report 9508029 (Version 1)
Quarter: 2013Q3

REPORT INFORMATION
  Report Type: Spontaneous
  Country: US (occurrence: US)
  Receive Date: 20130909
  Receipt Date: 20130909
  Transmission Date: 20140515
  Serious: Yes (Other)
  Sender: FDA-Public Use
  Company Number: US-BAYER-2013-107987

PATIENT
  Age: 65 Year
  Sex: Male

DRUGS (1)
  1. STIVARGA [Suspect]
     Indication: COLON CANCER
     Dosage: 120 MG, QD (3 TABLETS DAILY)
     Dates: start: 2013

REACTIONS (2)
  - Dysphonia [Not Recovered/Not Resolved]
  - Weight decreased [Not Recovered/Not Resolved]
